FAERS Safety Report 18153615 (Version 1)
Quarter: 2020Q3

REPORT INFORMATION
  Report Type: Spontaneous
  Country: GB (occurrence: GB)
  Receive Date: 20200816
  Receipt Date: 20200816
  Transmission Date: 20201103
  Serious: Yes (Other)
  Sender: FDA-Public Use
  Company Number: GB-PERRIGO-20GB011710

PATIENT
  Age: 58 Year
  Sex: Female
  Weight: 59.41 kg

DRUGS (1)
  1. NORZOL 40MG/ML PL00427/0068 [Suspect]
     Active Substance: METRONIDAZOLE BENZOATE
     Indication: GINGIVITIS
     Route: 048
     Dates: start: 20200714, end: 20200715

REACTIONS (10)
  - Discomfort [Unknown]
  - Depression [Recovered/Resolved with Sequelae]
  - Fatigue [Recovered/Resolved with Sequelae]
  - Vomiting [Recovered/Resolved with Sequelae]
  - Headache [Recovered/Resolved with Sequelae]
  - Cold sweat [Recovered/Resolved with Sequelae]
  - Rash [Recovered/Resolved with Sequelae]
  - Illness [Recovered/Resolved with Sequelae]
  - Abdominal discomfort [Recovered/Resolved with Sequelae]
  - Pain of skin [Recovered/Resolved with Sequelae]

NARRATIVE: CASE EVENT DATE: 20200714
